FAERS Safety Report 7570083-9 (Version None)
Quarter: 2011Q2

REPORT INFORMATION
  Report Type: 
  Country: None (occurrence: None)
  Receive Date: 20110622
  Receipt Date: 20110622
  Transmission Date: 20111010
  Serious: Yes (Other)
  Sender: FDA-Public Use
  Company Number: None

PATIENT
  Age: 44 Year
  Sex: Female

DRUGS (1)
  1. TRICOR [Suspect]
     Indication: BLOOD CHOLESTEROL
     Dosage: 1 TABLET DAILY ORAL
     Route: 048
     Dates: start: 20110401, end: 20110501

REACTIONS (4)
  - PALPITATIONS [None]
  - DRUG INEFFECTIVE [None]
  - FEELING ABNORMAL [None]
  - EXTRASYSTOLES [None]
